FAERS Safety Report 23880434 (Version 1)
Quarter: 2024Q2

REPORT INFORMATION
  Report Type: Spontaneous
  Country: US (occurrence: None)
  Receive Date: 20240521
  Receipt Date: 20240521
  Transmission Date: 20240716
  Serious: Yes (Congenital Anomaly)
  Sender: FDA-Public Use
  Company Number: None

PATIENT
  Sex: Male
  Weight: 3.5 kg

DRUGS (2)
  1. ZIPRASIDONE [Suspect]
     Active Substance: ZIPRASIDONE
     Dates: start: 20190613
  2. LAMOTRIGINE [Suspect]
     Active Substance: LAMOTRIGINE
     Dates: start: 20190613

REACTIONS (12)
  - VACTERL syndrome [None]
  - Pelvic kidney [None]
  - Rib deformity [None]
  - Congenital coronary artery malformation [None]
  - Hydrocele [None]
  - Penile torsion [None]
  - Single umbilical artery [None]
  - Scrotal swelling [None]
  - Wrist deformity [None]
  - Congenital clasped thumb [None]
  - Maternal drugs affecting foetus [None]
  - Hypospadias [None]

NARRATIVE: CASE EVENT DATE: 20191121
